FAERS Safety Report 18503190 (Version 1)
Quarter: 2020Q4

REPORT INFORMATION
  Report Type: Report from Study
  Country: US (occurrence: US)
  Receive Date: 20201113
  Receipt Date: 20201113
  Transmission Date: 20210114
  Serious: Yes (Hospitalization)
  Sender: FDA-Public Use
  Company Number: US-JNJFOC-20201043821

PATIENT
  Age: 65 Year
  Sex: Male

DRUGS (1)
  1. MACITENTAN [Suspect]
     Active Substance: MACITENTAN
     Indication: PULMONARY ARTERIAL HYPERTENSION
     Route: 048
     Dates: start: 20201014, end: 20201021

REACTIONS (6)
  - Dyspnoea [Unknown]
  - Weight increased [Unknown]
  - Rhinorrhoea [Unknown]
  - Pyrexia [Unknown]
  - Insomnia [Unknown]
  - Pleural effusion [Unknown]

NARRATIVE: CASE EVENT DATE: 202010
